FAERS Safety Report 8017351-4 (Version None)
Quarter: 2012Q1

REPORT INFORMATION
  Report Type: 
  Country: None (occurrence: None)
  Receive Date: 20120102
  Receipt Date: 20111230
  Transmission Date: 20120608
  Serious: Yes (Hospitalization)
  Sender: FDA-Public Use
  Company Number: FR-ROCHE-1026460

PATIENT
  Age: 71 Year
  Sex: Male

DRUGS (5)
  1. COPEGUS [Suspect]
     Indication: HEPATITIS C
     Dosage: LOWER DOSAGE
     Route: 048
     Dates: start: 20110318, end: 20111003
  2. PEGASYS [Suspect]
     Dates: start: 20110601
  3. INCIVO [Suspect]
     Indication: HEPATITIS C
     Route: 048
     Dates: start: 20110318, end: 20110603
  4. PEGASYS [Suspect]
     Indication: HEPATITIS C
     Dosage: DOSE REDUCED
     Route: 058
     Dates: start: 20110318, end: 20111003
  5. COPEGUS [Suspect]
     Dates: start: 20110701

REACTIONS (5)
  - ANAEMIA [None]
  - HERPES ZOSTER [None]
  - MEMORY IMPAIRMENT [None]
  - TREMOR [None]
  - CONFUSIONAL STATE [None]
